FAERS Safety Report 4345732-9 (Version None)
Quarter: 2004Q2

REPORT INFORMATION
  Report Type: 
  Country: None (occurrence: None)
  Receive Date: 20040421
  Receipt Date: 20040408
  Transmission Date: 20050107
  Serious: Yes (Hospitalization, Other)
  Sender: FDA-Public Use
  Company Number: 2004020482

PATIENT
  Age: 72 Year
  Sex: Female
  Weight: 60 kg

DRUGS (11)
  1. SORTIS (ATORVASTATIN) [Suspect]
     Indication: HYPERCHOLESTEROLAEMIA
     Dosage: 40 MG DAILY ORAL
     Route: 048
     Dates: start: 20000501, end: 20031101
  2. DOXYCYCLINE [Suspect]
     Indication: URINARY TRACT INFECTION
  3. BISOPROLOL FUMARATE [Suspect]
     Indication: AORTIC BYPASS
     Dosage: 2.5 MG DAILY
     Dates: start: 20020901, end: 20031101
  4. BISOPROLOL FUMARATE [Suspect]
     Indication: AORTIC VALVE REPLACEMENT
     Dosage: 2.5 MG DAILY
     Dates: start: 20020901, end: 20031101
  5. BISOPROLOL FUMARATE [Suspect]
     Indication: HYPERTENSION
     Dosage: 2.5 MG DAILY
     Dates: start: 20020901, end: 20031101
  6. ACETYLSALICYLIC ACID SRT [Suspect]
     Indication: AORTIC BYPASS
     Dosage: 100 MG DAILY
     Dates: start: 20000501, end: 20031101
  7. ACETYLSALICYLIC ACID SRT [Suspect]
     Indication: AORTIC VALVE REPLACEMENT
     Dosage: 100 MG DAILY
     Dates: start: 20000501, end: 20031101
  8. ACETYLSALICYLIC ACID SRT [Suspect]
     Indication: HYPERTENSION
     Dosage: 100 MG DAILY
     Dates: start: 20000501, end: 20031101
  9. ENALAPRIL MALEATE [Suspect]
     Indication: AORTIC VALVE REPLACEMENT
     Dosage: 5 MG DAILY ORAL
     Route: 048
     Dates: start: 20020901, end: 20031101
  10. ENALAPRIL MALEATE [Suspect]
     Indication: HYPERTENSION
     Dosage: 5 MG DAILY ORAL
     Route: 048
     Dates: start: 20020901, end: 20031101
  11. LEVOTHYROXINE SODIUM [Suspect]
     Indication: ILL-DEFINED DISORDER

REACTIONS (29)
  - ACTIVATED PARTIAL THROMBOPLASTIN TIME PROLONGED [None]
  - ANTINEUTROPHIL CYTOPLASMIC ANTIBODY POSITIVE [None]
  - ANTINUCLEAR ANTIBODY POSITIVE [None]
  - BLOOD AMYLASE INCREASED [None]
  - BLOOD CREATINE INCREASED [None]
  - BLOOD GLUCOSE INCREASED [None]
  - CYTOMEGALOVIRUS ANTIBODY POSITIVE [None]
  - EPSTEIN-BARR VIRUS ANTIBODY POSITIVE [None]
  - GLYCOSYLATED HAEMOGLOBIN INCREASED [None]
  - HAEMATOCRIT DECREASED [None]
  - HAEMOGLOBIN DECREASED [None]
  - HEPATIC FIBROSIS [None]
  - HEPATIC NECROSIS [None]
  - HEPATITIS [None]
  - HEPATITIS TOXIC [None]
  - HEPATOCELLULAR DAMAGE [None]
  - HEPATOMEGALY [None]
  - HYPERTENSION [None]
  - LIPASE INCREASED [None]
  - LYMPHOCYTE COUNT DECREASED [None]
  - PLATELET COUNT DECREASED [None]
  - PROTHROMBIN TIME PROLONGED [None]
  - PROTHROMBIN TIME SHORTENED [None]
  - RED BLOOD CELL COUNT DECREASED [None]
  - RED BLOOD CELL SEDIMENTATION RATE INCREASED [None]
  - SERUM FERRITIN INCREASED [None]
  - SMOOTH MUSCLE ANTIBODY POSITIVE [None]
  - URINARY TRACT INFECTION [None]
  - WHITE BLOOD CELL COUNT DECREASED [None]
